FAERS Safety Report 9028977 (Version 3)
Quarter: 2013Q2

REPORT INFORMATION
  Report Type: Spontaneous
  Country: US (occurrence: US)
  Receive Date: 20130123
  Receipt Date: 20130416
  Transmission Date: 20140414
  Serious: Yes (Hospitalization, Other)
  Sender: FDA-Public Use
  Company Number: US-SANOFI-AVENTIS-2013SA002938

PATIENT
  Age: 67 Year
  Sex: Female
  Weight: 102.73 kg

DRUGS (30)
  1. LANTUS SOLOSTAR [Suspect]
     Indication: TYPE 2 DIABETES MELLITUS
     Dosage: DOSE:50 UNIT(S)
     Route: 051
     Dates: start: 2007
  2. SOLOSTAR [Suspect]
     Indication: TYPE 2 DIABETES MELLITUS
     Dates: start: 2007
  3. NOVOLOG [Suspect]
     Dates: start: 2007
  4. FISH OIL [Concomitant]
     Dosage: 2
  5. ALLOPURINOL [Concomitant]
     Indication: GOUT
  6. SIMVASTATIN [Concomitant]
  7. OXYBUTYNIN [Concomitant]
     Indication: BLADDER DISORDER
  8. FEN FIBRATE [Concomitant]
  9. PRAMIPEXOL [Concomitant]
  10. GLIPIZIDE [Concomitant]
  11. PERPHEN-ANTRIP [Concomitant]
     Dosage: 2 TO 10 MG
  12. METOPROLOL [Concomitant]
  13. LOPRESSON [Concomitant]
  14. WARFIN [Concomitant]
  15. ANALGESICS [Concomitant]
     Dosage: AS NEEDED
  16. TYLENOL [Concomitant]
     Dosage: 2 AT NIGHT
  17. ACETAMINOPHEN [Concomitant]
     Dosage: 1/2 PILL
  18. MULTIVITAMINS [Concomitant]
  19. CALCIUM [Concomitant]
  20. VITAMIN D [Concomitant]
  21. IRON [Concomitant]
  22. ASPIRIN [Concomitant]
  23. GABAPENTIN [Concomitant]
  24. RAMIPRIL [Concomitant]
  25. OMEPRAZOLE [Concomitant]
  26. FUROSEMIDE [Concomitant]
  27. POTASSIUM [Concomitant]
  28. WATSON [Concomitant]
  29. CINNAMON PILLS [Concomitant]
  30. CK 4 FIMES [Concomitant]
     Dosage: DOSE:8 UNIT(S)

REACTIONS (8)
  - Atrioventricular block complete [Unknown]
  - Myocardial infarction [Unknown]
  - Infection [Unknown]
  - Fall [Unknown]
  - Upper limb fracture [Unknown]
  - Hand fracture [Unknown]
  - Blood glucose increased [Unknown]
  - Blood glucose decreased [Recovered/Resolved]
